FAERS Safety Report 9629270 (Version 1)
Quarter: 2013Q4

REPORT INFORMATION
  Report Type: Spontaneous
  Country: US (occurrence: US)
  Receive Date: 20131017
  Receipt Date: 20131017
  Transmission Date: 20140711
  Serious: No
  Sender: FDA-Public Use
  Company Number: US-ASTRAZENECA-2013SE64169

PATIENT
  Age: 67 Year
  Sex: Female
  Weight: 50.8 kg

DRUGS (4)
  1. CRESTOR [Suspect]
     Indication: BLOOD CHOLESTEROL INCREASED
     Route: 048
     Dates: start: 201307, end: 20130816
  2. CALICUM [Concomitant]
     Indication: MINERAL SUPPLEMENTATION
  3. VITAMIN D [Concomitant]
     Indication: VITAMIN SUPPLEMENTATION
  4. LOVAZA [Concomitant]
     Indication: BLOOD TRIGLYCERIDES

REACTIONS (9)
  - Arthralgia [Recovered/Resolved]
  - Feeling abnormal [Unknown]
  - Tenderness [Not Recovered/Not Resolved]
  - Osteoarthritis [Unknown]
  - Nail discolouration [Not Recovered/Not Resolved]
  - Joint swelling [Unknown]
  - Arthralgia [Unknown]
  - Pain in extremity [Unknown]
  - Off label use [Not Recovered/Not Resolved]
